FAERS Safety Report 14221576 (Version 4)
Quarter: 2018Q3

REPORT INFORMATION
  Report Type: Spontaneous
  Country: US (occurrence: US)
  Receive Date: 20171124
  Receipt Date: 20180828
  Transmission Date: 20181010
  Serious: Yes (Hospitalization)
  Sender: FDA-Public Use
  Company Number: US-ACTELION-A-NJ2017-162777

PATIENT
  Age: 38 Year
  Sex: Female

DRUGS (3)
  1. SILDENAFIL. [Concomitant]
     Active Substance: SILDENAFIL
     Dosage: 60 MG, TID
     Route: 048
     Dates: start: 20130101
  2. TRACLEER [Suspect]
     Active Substance: BOSENTAN
     Indication: PULMONARY ARTERIAL HYPERTENSION
     Dosage: 125 MG, BID
     Route: 048
     Dates: start: 20100327
  3. OXYGEN. [Concomitant]
     Active Substance: OXYGEN

REACTIONS (11)
  - Hospitalisation [Unknown]
  - Fatigue [Unknown]
  - Angiopathy [Unknown]
  - Gastrointestinal disorder [Unknown]
  - Headache [Unknown]
  - Cough [Unknown]
  - Swelling [Unknown]
  - Flushing [Unknown]
  - Angioplasty [Unknown]
  - Dizziness [Unknown]
  - Oxygen therapy [Unknown]

NARRATIVE: CASE EVENT DATE: 201710
